FAERS Safety Report 7747546-6 (Version None)
Quarter: 2011Q3

REPORT INFORMATION
  Report Type: 
  Country: None (occurrence: None)
  Receive Date: 20110913
  Receipt Date: 20110908
  Transmission Date: 20111222
  Serious: Yes (Hospitalization)
  Sender: FDA-Public Use
  Company Number: US-PFIZER INC-2011212263

PATIENT
  Age: 50 Year
  Sex: Female

DRUGS (1)
  1. XANAX [Suspect]

REACTIONS (1)
  - DRUG WITHDRAWAL SYNDROME [None]
